FAERS Safety Report 10181193 (Version 2)
Quarter: 2014Q2

REPORT INFORMATION
  Report Type: Spontaneous
  Country: US (occurrence: US)
  Receive Date: 20140519
  Receipt Date: 20140519
  Transmission Date: 20141212
  Serious: No
  Sender: FDA-Public Use
  Company Number: US-AMGEN INC.-USASP2014026135

PATIENT
  Sex: Female
  Weight: 75.74 kg

DRUGS (2)
  1. PROLIA [Suspect]
     Indication: OSTEOPOROSIS POSTMENOPAUSAL
     Dosage: Q6MO
     Route: 058
     Dates: start: 20130910
  2. CALCIUM + VIT D [Concomitant]
     Dosage: 600/200, QD
     Route: 048

REACTIONS (1)
  - Rash [Recovering/Resolving]
